FAERS Safety Report 10983539 (Version 1)
Quarter: 2015Q1

REPORT INFORMATION
  Report Type: Spontaneous
  Country: GB (occurrence: None)
  Receive Date: 20150302
  Receipt Date: 20150302
  Transmission Date: 20150721
  Serious: Yes (Other)
  Sender: FDA-Public Use
  Company Number: GBI002810

PATIENT
  Age: 19 Year
  Sex: Male

DRUGS (1)
  1. ALPHANINE SD [Suspect]
     Active Substance: COAGULATION FACTOR IX HUMAN
     Indication: FACTOR IX DEFICIENCY
     Route: 042

REACTIONS (1)
  - Thrombosis in device [None]
